FAERS Safety Report 20788199 (Version 1)
Quarter: 2022Q2

REPORT INFORMATION
  Report Type: Spontaneous
  Country: US (occurrence: None)
  Receive Date: 20220505
  Receipt Date: 20220505
  Transmission Date: 20220721
  Serious: No
  Sender: FDA-Public Use
  Company Number: US-ROCHE-2822241

PATIENT
  Sex: Female

DRUGS (1)
  1. OCREVUS [Suspect]
     Active Substance: OCRELIZUMAB
     Indication: Product used for unknown indication
     Dosage: 300MG/10 ML
     Route: 042
     Dates: start: 20180301

REACTIONS (4)
  - Mass [Unknown]
  - Chills [Unknown]
  - Eating disorder [Unknown]
  - Fatigue [Unknown]
